FAERS Safety Report 17909510 (Version 1)
Quarter: 2020Q2

REPORT INFORMATION
  Report Type: Spontaneous
  Country: PL (occurrence: PL)
  Receive Date: 20200618
  Receipt Date: 20200618
  Transmission Date: 20200714
  Serious: No
  Sender: FDA-Public Use
  Company Number: PL-LUPIN PHARMACEUTICALS INC.-2020-02559

PATIENT
  Age: 62 Year
  Sex: Female

DRUGS (1)
  1. GABAPENTIN. [Suspect]
     Active Substance: GABAPENTIN
     Indication: ERYTHROMELALGIA
     Dosage: 900 MILLIGRAM, QD
     Route: 048

REACTIONS (3)
  - Nausea [Unknown]
  - Drug ineffective [Unknown]
  - Fatigue [Unknown]
